FAERS Safety Report 6196071-5 (Version None)
Quarter: 2009Q2

REPORT INFORMATION
  Report Type: 
  Country: None (occurrence: None)
  Receive Date: 20090520
  Receipt Date: 20050629
  Transmission Date: 20091009
  Serious: Yes (Hospitalization)
  Sender: FDA-Public Use
  Company Number: NL-ROCHE-603932

PATIENT
  Sex: Male

DRUGS (3)
  1. CAPECITABINE [Suspect]
     Indication: COLORECTAL CANCER
     Dosage: START DATE: 24/11
     Route: 048
  2. OXALIPLATIN [Suspect]
     Indication: COLORECTAL CANCER
     Dosage: START DATE: 24/11
     Route: 065
  3. DEXAMETHASONE 4MG TAB [Suspect]
     Indication: ANTIEMETIC SUPPORTIVE CARE
     Dosage: START DATE: 24/11
     Route: 042

REACTIONS (1)
  - DIABETES MELLITUS [None]
